FAERS Safety Report 7208997-1 (Version None)
Quarter: 2011Q1

REPORT INFORMATION
  Report Type: 
  Country: None (occurrence: None)
  Receive Date: 20110104
  Receipt Date: 20101231
  Transmission Date: 20110831
  Serious: Yes (Death)
  Sender: FDA-Public Use
  Company Number: PHHY2010GB89774

PATIENT
  Age: 85 Year
  Sex: Female
  Weight: 46 kg

DRUGS (1)
  1. ALENDRONIC ACID [Suspect]
     Dosage: 70 MG, UNK
     Route: 048
     Dates: start: 20050203, end: 20060217

REACTIONS (1)
  - OESOPHAGEAL ADENOCARCINOMA [None]
